FAERS Safety Report 16086980 (Version 1)
Quarter: 2019Q1

REPORT INFORMATION
  Report Type: Spontaneous
  Country: CA (occurrence: CA)
  Receive Date: 20190318
  Receipt Date: 20190318
  Transmission Date: 20190418
  Serious: Yes (Death)
  Sender: FDA-Public Use
  Company Number: CA-BAXTER-2019BAX005173

PATIENT
  Age: 24 Year
  Sex: Male

DRUGS (4)
  1. PANTOPRAZOLE [Suspect]
     Active Substance: PANTOPRAZOLE
     Indication: ABDOMINAL PAIN
     Dosage: FREQUENCY: ONCE?INJECTION LYOPHILIZED POWDER,?DOSAGE FORM: POWDER FOR SOLUTION
     Route: 042
  2. 0.9% SODIUM CHLORIDE INJECTION [Suspect]
     Active Substance: SODIUM CHLORIDE
     Indication: ABDOMINAL PAIN
  3. 0.9% SODIUM CHLORIDE INJECTION [Suspect]
     Active Substance: SODIUM CHLORIDE
     Indication: HAEMATEMESIS
     Dosage: FREQUENCY: ONCE
     Route: 042
  4. PANTOPRAZOLE [Suspect]
     Active Substance: PANTOPRAZOLE
     Indication: HAEMATEMESIS

REACTIONS (5)
  - Dyspnoea [Fatal]
  - Oxygen saturation decreased [Fatal]
  - Endotracheal intubation [Fatal]
  - Respiratory failure [Fatal]
  - Cardio-respiratory arrest [Fatal]
